FAERS Safety Report 5700319-8 (Version None)
Quarter: 2008Q2

REPORT INFORMATION
  Report Type: 
  Country: None (occurrence: None)
  Receive Date: 20080410
  Receipt Date: 20080404
  Transmission Date: 20081010
  Serious: Yes (Hospitalization)
  Sender: FDA-Public Use
  Company Number: B0515252A

PATIENT
  Age: 74 Year
  Sex: Female

DRUGS (1)
  1. ARIXTRA [Suspect]
     Indication: THROMBOSIS PROPHYLAXIS
     Dosage: 1.5MG PER DAY
     Route: 058

REACTIONS (3)
  - HAEMORRHAGE SUBCUTANEOUS [None]
  - OEDEMA PERIPHERAL [None]
  - THROMBOSIS [None]
